FAERS Safety Report 4411991-7 (Version None)
Quarter: 2004Q3

REPORT INFORMATION
  Report Type: 
  Country: None (occurrence: None)
  Receive Date: 20040730
  Receipt Date: 20040727
  Transmission Date: 20050211
  Serious: Yes (Death)
  Sender: FDA-Public Use
  Company Number: JP-ROCHE-375450

PATIENT
  Age: 64 Year
  Sex: Male

DRUGS (4)
  1. NICARDIPINE HCL [Suspect]
     Indication: DRUG USE FOR UNKNOWN INDICATION
     Route: 065
  2. FLUITRAN [Concomitant]
  3. ALLOPURINOL TAB [Concomitant]
     Dates: start: 20040515
  4. DIOVAN [Concomitant]
     Dates: start: 20040515

REACTIONS (4)
  - BLOOD URIC ACID INCREASED [None]
  - ECZEMA [None]
  - MULTI-ORGAN FAILURE [None]
  - PYREXIA [None]
